FAERS Safety Report 6729636-X (Version None)
Quarter: 2010Q2

REPORT INFORMATION
  Report Type: 
  Country: None (occurrence: None)
  Receive Date: 20100512
  Receipt Date: 20100413
  Transmission Date: 20101027
  Serious: Yes (Other)
  Sender: FDA-Public Use
  Company Number: AUR-APL-2010-01182

PATIENT
  Age: 53 Year
  Sex: Male
  Weight: 97 kg

DRUGS (3)
  1. AMOXICILLIN [Suspect]
     Dates: start: 20100406
  2. HYDROCHLOROTHIAZIDE [Suspect]
     Indication: BLOOD PRESSURE ABNORMAL
     Dosage: ORAL
     Route: 048
     Dates: start: 20100301
  3. PRED FORTE [Concomitant]

REACTIONS (8)
  - BLOOD PRESSURE ABNORMAL [None]
  - DIZZINESS [None]
  - DRUG EFFECT DECREASED [None]
  - LIQUID PRODUCT PHYSICAL ISSUE [None]
  - PARAESTHESIA OF GENITAL MALE [None]
  - PENILE PAIN [None]
  - SINUSITIS [None]
  - TESTICULAR PAIN [None]
